FAERS Safety Report 4494181-1 (Version None)
Quarter: 2004Q4

REPORT INFORMATION
  Report Type: 
  Country: None (occurrence: None)
  Receive Date: 20041102
  Receipt Date: 20041020
  Transmission Date: 20050328
  Serious: Yes (Hospitalization)
  Sender: FDA-Public Use
  Company Number: 2004075473

PATIENT
  Age: 75 Year
  Sex: Female
  Weight: 42.5 kg

DRUGS (11)
  1. SULPERAZON (CEFOPERAZONE, SULBACTAM) [Suspect]
     Indication: INFECTION PROPHYLAXIS
     Dosage: 2 GRAM (1 GRAM, 2 IN 1 D), INTRAVENOUS
     Route: 042
     Dates: start: 20040811, end: 20040820
  2. TIENAM (CILASTATIN, IMIPENEM) [Suspect]
     Indication: C-REACTIVE PROTEIN INCREASED
     Dosage: 1 GRAM (0.5 GRAM, 2 IN 1 D), INTRAVENOUS
     Route: 042
     Dates: start: 20040903, end: 20040904
  3. TIENAM (CILASTATIN, IMIPENEM) [Suspect]
     Indication: PYREXIA
     Dosage: 1 GRAM (0.5 GRAM, 2 IN 1 D), INTRAVENOUS
     Route: 042
     Dates: start: 20040903, end: 20040904
  4. SENNOSIDE A+B [Concomitant]
  5. CEFDINIR [Concomitant]
  6. AMANTADINE HCL [Concomitant]
  7. MADOPAR (BENSERAZIDE HYDROCHLORIDE, LEVODOPA) [Concomitant]
  8. BROMOCRIPTINE MESYLATE [Concomitant]
  9. LOXOPROFEN SODIUM [Concomitant]
  10. REBAMIPIDE [Concomitant]
  11. ORGAN LYSATE, STANDARDIZED [Concomitant]

REACTIONS (1)
  - CLOSTRIDIUM COLITIS [None]
